FAERS Safety Report 5412414-1 (Version None)
Quarter: 2007Q3

REPORT INFORMATION
  Report Type: 
  Country: None (occurrence: None)
  Receive Date: 20070813
  Receipt Date: 20070801
  Transmission Date: 20080115
  Serious: Yes (Hospitalization)
  Sender: FDA-Public Use
  Company Number: US-MERCK-0708USA00168

PATIENT
  Age: 50 Year
  Sex: Male

DRUGS (16)
  1. CRIXIVAN [Suspect]
     Indication: HIV INFECTION
     Route: 048
  2. STAVUDINE [Concomitant]
     Route: 065
  3. LAMIVUDINE [Concomitant]
     Route: 065
  4. ATOVAQUONE [Concomitant]
     Route: 065
  5. ACYCLOVIR [Concomitant]
     Route: 065
  6. FLUOXETINE [Concomitant]
     Route: 065
  7. DEXTROAMPHETAMINE [Concomitant]
     Route: 065
  8. TRAZODONE HYDROCHLORIDE [Concomitant]
     Route: 065
  9. ALPRAZOLAM [Concomitant]
     Route: 065
  10. ZOLPIDEM TARTRATE [Concomitant]
     Route: 065
  11. LANSOPRAZOLE [Concomitant]
     Route: 065
  12. ALLOPURINOL [Concomitant]
     Route: 065
  13. FOLIC ACID [Concomitant]
     Route: 065
  14. FERROUS SULFATE [Concomitant]
     Route: 065
  15. ALBUTEROL [Concomitant]
     Route: 065
  16. PREDNISONE [Concomitant]
     Route: 065

REACTIONS (1)
  - SPLENIC MARGINAL ZONE LYMPHOMA [None]
